FAERS Safety Report 5233901-5 (Version None)
Quarter: 2007Q1

REPORT INFORMATION
  Report Type: 
  Country: None (occurrence: None)
  Receive Date: 20070208
  Receipt Date: 20070129
  Transmission Date: 20070707
  Serious: Yes (Death, Hospitalization)
  Sender: FDA-Public Use
  Company Number: FR-JNJFOC-20070107380

PATIENT
  Age: 78 Year
  Sex: Female
  Weight: 66 kg

DRUGS (4)
  1. DURAGESIC-100 [Suspect]
     Indication: BACK PAIN
     Route: 062
     Dates: start: 20061015, end: 20061024
  2. SPIRONOLACTONE [Concomitant]
  3. BITILDIEM [Concomitant]
  4. VASTAREL [Concomitant]

REACTIONS (3)
  - ASTHENIA [None]
  - CONFUSIONAL STATE [None]
  - SOMNOLENCE [None]
